FAERS Safety Report 12536513 (Version 1)
Quarter: 2016Q3

REPORT INFORMATION
  Report Type: Spontaneous
  Country: US (occurrence: US)
  Receive Date: 20160707
  Receipt Date: 20160707
  Transmission Date: 20161109
  Serious: No
  Sender: FDA-Public Use
  Company Number: US-PFIZER INC-2016328738

PATIENT
  Sex: Female

DRUGS (2)
  1. METRONIDAZOLE. [Suspect]
     Active Substance: METRONIDAZOLE
     Dosage: UNK
  2. METRONIDAZOLE. [Suspect]
     Active Substance: METRONIDAZOLE
     Dosage: ^TWICE ONCE^

REACTIONS (5)
  - Paraesthesia [Unknown]
  - Ear discomfort [Unknown]
  - Pain [Unknown]
  - Ear pain [Unknown]
  - Hypoaesthesia [Unknown]
